FAERS Safety Report 8514707-8 (Version None)
Quarter: 2012Q3

REPORT INFORMATION
  Report Type: 
  Country: None (occurrence: None)
  Receive Date: 20120711
  Receipt Date: 20120711
  Transmission Date: 20120928
  Serious: Yes (Life-Threatening, Hospitalization)
  Sender: FDA-Public Use
  Company Number: None

PATIENT
  Age: 83 Year
  Sex: Female
  Weight: 70.3075 kg

DRUGS (1)
  1. ETODOLAC [Suspect]
     Indication: ARTHRITIS
     Dosage: ONE TABLET TWICE DAILY
     Dates: start: 20120519, end: 20120611

REACTIONS (8)
  - PYREXIA [None]
  - CHILLS [None]
  - ASTHENIA [None]
  - FATIGUE [None]
  - HEPATIC ENZYME INCREASED [None]
  - MUSCULOSKELETAL CHEST PAIN [None]
  - LIVER INJURY [None]
  - MALAISE [None]
